FAERS Safety Report 15001663 (Version 1)
Quarter: 2018Q2

REPORT INFORMATION
  Report Type: Report from Study
  Country: NL (occurrence: NL)
  Receive Date: 20180612
  Receipt Date: 20180612
  Transmission Date: 20180711
  Serious: Yes (Death, Hospitalization)
  Sender: FDA-Public Use
  Company Number: NL-PFIZER INC-2018215932

PATIENT
  Age: 46 Year
  Sex: Female

DRUGS (2)
  1. DOLOPHINE [Concomitant]
     Active Substance: METHADONE HYDROCHLORIDE
     Dosage: 15 MG, 2X/DAY
     Dates: start: 20180514
  2. AXITINIB [Suspect]
     Active Substance: AXITINIB
     Indication: RECTAL CANCER
     Dosage: 5 MG, 2X/DAY
     Route: 048
     Dates: start: 20180417, end: 20180515

REACTIONS (1)
  - Rectal perforation [Fatal]

NARRATIVE: CASE EVENT DATE: 20180521
